FAERS Safety Report 5225807-2 (Version None)
Quarter: 2007Q1

REPORT INFORMATION
  Report Type: 
  Country: None (occurrence: None)
  Receive Date: 20070130
  Receipt Date: 20070130
  Transmission Date: 20070707
  Serious: Yes (Death)
  Sender: FDA-Public Use
  Company Number: None

PATIENT
  Age: 48 Year
  Sex: Male
  Weight: 95.2554 kg

DRUGS (1)
  1. TARCEVA [Suspect]
     Indication: NON-SMALL CELL LUNG CANCER
     Dosage: 150MGS DAILY PO
     Route: 048
     Dates: start: 20070105, end: 20070124

REACTIONS (12)
  - DYSPNOEA [None]
  - GENERAL PHYSICAL HEALTH DETERIORATION [None]
  - JOINT SWELLING [None]
  - LIVEDO RETICULARIS [None]
  - LUNG NEOPLASM MALIGNANT [None]
  - OEDEMA PERIPHERAL [None]
  - OXYGEN SATURATION DECREASED [None]
  - PERIPHERAL COLDNESS [None]
  - PULMONARY EMBOLISM [None]
  - PULSE ABSENT [None]
  - PULSE PRESSURE DECREASED [None]
  - VENOUS THROMBOSIS [None]
